FAERS Safety Report 22135843 (Version 2)
Quarter: 2023Q2

REPORT INFORMATION
  Report Type: Spontaneous
  Country: DE (occurrence: DE)
  Receive Date: 20230324
  Receipt Date: 20230403
  Transmission Date: 20230722
  Serious: Yes (Other)
  Sender: FDA-Public Use
  Company Number: DE-ROCHE-3306442

PATIENT
  Age: 58 Year
  Sex: Female

DRUGS (17)
  1. GEMCITABINE [Suspect]
     Active Substance: GEMCITABINE
     Indication: Diffuse large B-cell lymphoma
     Dosage: UNK (R-GEMOX, 3 CYCLES)
     Route: 065
     Dates: start: 202207, end: 20220807
  2. DOXORUBICIN [Suspect]
     Active Substance: DOXORUBICIN
     Indication: Diffuse large B-cell lymphoma
     Dosage: UNK (2ND LINE R-DHAP, 4 CYCLES)
     Route: 065
     Dates: start: 202108, end: 202111
  3. CYTARABINE [Suspect]
     Active Substance: CYTARABINE
     Indication: Diffuse large B-cell lymphoma
     Dosage: UNK (2ND LINE R-DHAP, 4 CYCLES)
     Route: 065
     Dates: start: 202108, end: 202111
  4. PREDNISONE [Suspect]
     Active Substance: PREDNISONE
     Indication: Diffuse large B-cell lymphoma
     Dosage: UNK (1ST LINE R-CHOP)
     Route: 065
     Dates: start: 201911, end: 202003
  5. CYCLOPHOSPHAMIDE [Suspect]
     Active Substance: CYCLOPHOSPHAMIDE
     Indication: Diffuse large B-cell lymphoma
     Dosage: UNK (1ST LINE R-CHOP)
     Route: 065
     Dates: start: 201911, end: 202003
  6. VINCRISTINE [Suspect]
     Active Substance: VINCRISTINE
     Indication: Diffuse large B-cell lymphoma
     Dosage: UNK (1ST LINE R-CHOP)
     Route: 065
     Dates: start: 201911, end: 202003
  7. OXALIPLATIN [Suspect]
     Active Substance: OXALIPLATIN
     Indication: Diffuse large B-cell lymphoma
     Dosage: UNK (R-GEMOX, 3 CYCLES)
     Route: 065
     Dates: start: 202207, end: 20220807
  8. ETOPOSIDE [Suspect]
     Active Substance: ETOPOSIDE
     Indication: Diffuse large B-cell lymphoma
     Dosage: UNK (R-BEAM)
     Route: 065
     Dates: start: 202112, end: 20211229
  9. CISPLATIN [Suspect]
     Active Substance: CISPLATIN
     Indication: Diffuse large B-cell lymphoma
     Dosage: UNK (2ND LINE R-DHAP, 4 CYCLES)
     Route: 065
     Dates: start: 202108, end: 202111
  10. RITUXIMAB [Suspect]
     Active Substance: RITUXIMAB
     Indication: Diffuse large B-cell lymphoma
     Dosage: UNK (1ST LINE R-CHOP)
     Route: 065
     Dates: start: 201911, end: 202003
  11. RITUXIMAB [Suspect]
     Active Substance: RITUXIMAB
     Dosage: UNK (2ND LINE R-DHAP,4 CYCLES)
     Route: 065
     Dates: start: 202108, end: 202111
  12. RITUXIMAB [Suspect]
     Active Substance: RITUXIMAB
     Dosage: UNK (R-BEAM)
     Route: 065
     Dates: start: 202112, end: 20211229
  13. RITUXIMAB [Suspect]
     Active Substance: RITUXIMAB
     Dosage: UNK (R-GEMOX, 3 CYCLES)
     Route: 065
     Dates: start: 202207, end: 20220807
  14. MELPHALAN [Suspect]
     Active Substance: MELPHALAN
     Indication: Diffuse large B-cell lymphoma
     Dosage: UNK (R-BEAM)
     Route: 065
     Dates: start: 202112, end: 20211229
  15. DEXAMETHASONE [Suspect]
     Active Substance: DEXAMETHASONE
     Indication: Diffuse large B-cell lymphoma
     Dosage: UNK (2ND LINE R-DHAP, 4 CYCLES)
     Route: 065
     Dates: start: 202108, end: 202111
  16. BICNU [Suspect]
     Active Substance: CARMUSTINE
     Indication: Diffuse large B-cell lymphoma
     Dosage: R-BEAM
     Route: 065
     Dates: start: 202112, end: 20211229
  17. EPIRUBICIN [Suspect]
     Active Substance: EPIRUBICIN
     Indication: Diffuse large B-cell lymphoma
     Dosage: UNK (1ST LINE R-CHOP)
     Route: 065
     Dates: start: 201911, end: 202003

REACTIONS (2)
  - Lymphoma [Not Recovered/Not Resolved]
  - Neuropathy peripheral [Unknown]

NARRATIVE: CASE EVENT DATE: 20211101
